FAERS Safety Report 5096090-6 (Version None)
Quarter: 2006Q3

REPORT INFORMATION
  Report Type: 
  Country: None (occurrence: None)
  Receive Date: 20060830
  Receipt Date: 20060821
  Transmission Date: 20061208
  Serious: Yes (Hospitalization, Other)
  Sender: FDA-Public Use
  Company Number: USA-2006-0024974

PATIENT
  Sex: Male

DRUGS (1)
  1. MS CONTIN [Suspect]
     Indication: PAIN MANAGEMENT
     Dosage: 100 MG, Q12H,

REACTIONS (2)
  - DRUG TOLERANCE [None]
  - RENAL CELL CARCINOMA STAGE UNSPECIFIED [None]
